FAERS Safety Report 24755832 (Version 1)
Quarter: 2024Q4

REPORT INFORMATION
  Report Type: Spontaneous
  Country: US (occurrence: US)
  Receive Date: 20241219
  Receipt Date: 20241219
  Transmission Date: 20250114
  Serious: No
  Sender: BRISTOL-MYERS SQUIBB COMPANY
  Company Number: US-BRISTOL-MYERS SQUIBB COMPANY-2024-197247

PATIENT
  Age: 85 Year
  Sex: Male
  Weight: 73.94 kg

DRUGS (2)
  1. POMALYST [Suspect]
     Active Substance: POMALIDOMIDE
     Indication: Product used for unknown indication
     Dosage: ON 21 DAYS ON AND 7 DAYS OFF
     Dates: start: 20241209
  2. POMALYST [Suspect]
     Active Substance: POMALIDOMIDE
     Dosage: ON 21 DAYS ON AND 7 DAYS OFF

REACTIONS (1)
  - Laboratory test abnormal [Unknown]
